FAERS Safety Report 7843655-1 (Version None)
Quarter: 2011Q4

REPORT INFORMATION
  Report Type: 
  Country: None (occurrence: None)
  Receive Date: 20111018
  Receipt Date: 20111003
  Transmission Date: 20120403
  Serious: Yes (Other)
  Sender: FDA-Public Use
  Company Number: 2011BI005925

PATIENT
  Age: 70 Year
  Sex: Female

DRUGS (2)
  1. ZEVALIN [Suspect]
     Indication: NON-HODGKIN'S LYMPHOMA
     Dosage: UNK, UNK, X1
     Dates: start: 20040506, end: 20040506
  2. RITUXIMAB (RITUXIMAB) [Suspect]
     Indication: NON-HODGKIN'S LYMPHOMA
     Dosage: 450MG, UNK, X1
     Dates: start: 20040429, end: 20040429

REACTIONS (1)
  - BREAST CANCER [None]
